FAERS Safety Report 13055764 (Version 1)
Quarter: 2016Q4

REPORT INFORMATION
  Report Type: Spontaneous
  Country: JP (occurrence: JP)
  Receive Date: 20161222
  Receipt Date: 20161222
  Transmission Date: 20170207
  Serious: Yes (Hospitalization, Other)
  Sender: FDA-Public Use
  Company Number: JP-009507513-1612JPN009719

PATIENT
  Age: 94 Year
  Sex: Female

DRUGS (3)
  1. MOBIC [Concomitant]
     Active Substance: MELOXICAM
     Dosage: 10 TABLETS, ONCE
     Route: 048
     Dates: start: 20160808, end: 20160808
  2. BELSOMRA [Suspect]
     Active Substance: SUVOREXANT
     Indication: SUICIDE ATTEMPT
     Dosage: 30 TABLETS, ONCE
     Route: 048
     Dates: start: 20160808, end: 20160808
  3. IODOLECITHINE [Concomitant]
     Dosage: 10 TABLETS ONCE
     Route: 048
     Dates: start: 20160808, end: 20160808

REACTIONS (2)
  - Intentional overdose [Unknown]
  - Suicide attempt [Recovered/Resolved]

NARRATIVE: CASE EVENT DATE: 20160808
